FAERS Safety Report 10446924 (Version 2)
Quarter: 2014Q3

REPORT INFORMATION
  Report Type: Report from Study
  Country: CN (occurrence: CN)
  Receive Date: 20140911
  Receipt Date: 20140911
  Transmission Date: 20150326
  Serious: Yes (Hospitalization, Other)
  Sender: FDA-Public Use
  Company Number: CN-BAYER-2014-092137

PATIENT
  Age: 46 Year
  Sex: Male

DRUGS (5)
  1. NEXAVAR [Suspect]
     Active Substance: SORAFENIB
     Indication: HEPATOCELLULAR CARCINOMA
     Dosage: 400 MG, BID
     Route: 048
     Dates: start: 20140605, end: 20140822
  2. NEXAVAR [Suspect]
     Active Substance: SORAFENIB
     Indication: HEPATOCELLULAR CARCINOMA
     Dosage: 400 MG, QD
     Route: 048
     Dates: start: 20140823, end: 20140826
  3. NEXAVAR [Suspect]
     Active Substance: SORAFENIB
     Indication: HEPATOCELLULAR CARCINOMA
     Dosage: 400 MG, BID
     Route: 048
     Dates: start: 20140827
  4. TRAMADOL [Suspect]
     Active Substance: TRAMADOL
     Indication: HEPATIC PAIN
     Dosage: UNK
     Dates: start: 20140901, end: 20140901
  5. TRAMADOL [Suspect]
     Active Substance: TRAMADOL
     Indication: HEPATIC PAIN

REACTIONS (9)
  - Vomiting [None]
  - Palmar-plantar erythrodysaesthesia syndrome [None]
  - Nausea [None]
  - Vomiting [None]
  - Hepatocellular carcinoma [None]
  - Hypertension [None]
  - Diarrhoea [None]
  - Aphagia [None]
  - Hepatic pain [None]

NARRATIVE: CASE EVENT DATE: 20140611
